FAERS Safety Report 4576238-X (Version None)
Quarter: 2005Q1

REPORT INFORMATION
  Report Type: 
  Country: None (occurrence: None)
  Receive Date: 20050207
  Receipt Date: 20050127
  Transmission Date: 20050727
  Serious: Yes (Hospitalization)
  Sender: FDA-Public Use
  Company Number: 2005-01-1793

PATIENT
  Age: 34 Year
  Sex: Male

DRUGS (4)
  1. BETAMETHASONE [Suspect]
     Indication: BACK PAIN
     Dosage: ORAL
     Route: 048
     Dates: start: 20041123, end: 20041203
  2. ACUPAN INJECTABLE [Suspect]
     Indication: BACK PAIN
     Dosage: INTRAMUSCULAR
     Route: 030
     Dates: start: 20041123, end: 20041203
  3. TETRAZEPAM [Suspect]
     Indication: BACK PAIN
     Dosage: ORAL
     Route: 048
     Dates: start: 20041123, end: 20041203
  4. LAMALINE [Suspect]
     Indication: BACK PAIN
     Dosage: ORAL
     Route: 048
     Dates: start: 20041123, end: 20041203

REACTIONS (4)
  - CYTOLYTIC HEPATITIS [None]
  - DRUG RASH WITH EOSINOPHILIA AND SYSTEMIC SYMPTOMS [None]
  - OEDEMA PERIPHERAL [None]
  - TOXIC SKIN ERUPTION [None]
